FAERS Safety Report 6430456-4 (Version None)
Quarter: 2009Q4

REPORT INFORMATION
  Report Type: 
  Country: None (occurrence: None)
  Receive Date: 20091104
  Receipt Date: 20091027
  Transmission Date: 20100525
  Serious: No
  Sender: FDA-Public Use
  Company Number: DSU-2009-02388

PATIENT
  Sex: Female
  Weight: 81.6475 kg

DRUGS (2)
  1. WELCHOL [Suspect]
     Indication: HYPERCHOLESTEROLAEMIA
     Dosage: 3750 MG (1250 MG, TID), PER ORAL
     Route: 048
     Dates: start: 20090101, end: 20090101
  2. AMLODIPINE [Concomitant]

REACTIONS (2)
  - DYSPHAGIA [None]
  - FOREIGN BODY [None]
